FAERS Safety Report 19308878 (Version 1)
Quarter: 2021Q2

REPORT INFORMATION
  Report Type: Report from Study
  Country: CA (occurrence: CA)
  Receive Date: 20210525
  Receipt Date: 20210525
  Transmission Date: 20210717
  Serious: Yes (Other)
  Sender: FDA-Public Use
  Company Number: CA-ASTRAZENECA-2021A440990

PATIENT
  Age: 52 Year
  Sex: Male
  Weight: 140 kg

DRUGS (22)
  1. CANDESARTAN CILEXETIL/AMLODIPINE BESILATE [Suspect]
     Active Substance: AMLODIPINE BESYLATE\CANDESARTAN CILEXETIL
     Indication: SECONDARY PROGRESSIVE MULTIPLE SCLEROSIS
     Dosage: 10.0MG UNKNOWN
     Route: 048
  2. FAMPYRA [Concomitant]
     Active Substance: DALFAMPRIDINE
     Dosage: 10.0MG UNKNOWN
     Route: 065
  3. VITAMIN D3 [Concomitant]
     Active Substance: CHOLECALCIFEROL
     Route: 065
  4. BISOPROLOL [Suspect]
     Active Substance: BISOPROLOL
     Indication: SECONDARY PROGRESSIVE MULTIPLE SCLEROSIS
     Route: 048
  5. CODEINE/ACETYLSALICYLIC ACID [Concomitant]
     Dosage: 81.0MG UNKNOWN
     Route: 065
  6. BENZBROMARONE/ALLOPURINOL [Concomitant]
     Dosage: 100.0MG UNKNOWN
     Route: 048
  7. RABEPRAZOLE SODIUM. [Concomitant]
     Active Substance: RABEPRAZOLE SODIUM
     Route: 065
  8. RABEPRAZOLE [Suspect]
     Active Substance: RABEPRAZOLE
     Indication: SECONDARY PROGRESSIVE MULTIPLE SCLEROSIS
     Dosage: 20.0MG UNKNOWN
     Route: 048
  9. DOXEPIN HYDROCHLORIDE. [Suspect]
     Active Substance: DOXEPIN HYDROCHLORIDE
     Indication: PRODUCT USED FOR UNKNOWN INDICATION
     Dosage: 6.0MG UNKNOWN
     Route: 065
  10. ASPIRIN [ACETYLSALICYLIC ACID] [Concomitant]
     Active Substance: ASPIRIN
     Route: 065
  11. BACLOFEN. [Suspect]
     Active Substance: BACLOFEN
     Indication: PRODUCT USED FOR UNKNOWN INDICATION
     Dosage: 30.0MG UNKNOWN
     Route: 065
  12. LORAZEPAM. [Suspect]
     Active Substance: LORAZEPAM
     Indication: PRODUCT USED FOR UNKNOWN INDICATION
     Route: 048
  13. TECFIDERA [Suspect]
     Active Substance: DIMETHYL FUMARATE
     Indication: PRODUCT USED FOR UNKNOWN INDICATION
     Route: 065
  14. ATIVAN [Concomitant]
     Active Substance: LORAZEPAM
     Dosage: 0.5MG UNKNOWN
     Route: 065
  15. PRAMIPEXOLE. [Suspect]
     Active Substance: PRAMIPEXOLE
     Indication: SECONDARY PROGRESSIVE MULTIPLE SCLEROSIS
     Dosage: 0.25MG UNKNOWN
     Route: 048
  16. REBIF [Suspect]
     Active Substance: INTERFERON BETA-1A
     Indication: PRODUCT USED FOR UNKNOWN INDICATION
     Route: 058
  17. CALCIUM [Concomitant]
     Active Substance: CALCIUM
     Route: 065
  18. ROSUVASTATIN CALCIUM. [Suspect]
     Active Substance: ROSUVASTATIN CALCIUM
     Indication: PRODUCT USED FOR UNKNOWN INDICATION
     Dosage: 5.0MG UNKNOWN
     Route: 048
  19. GABAPENTIN. [Suspect]
     Active Substance: GABAPENTIN
     Indication: PRODUCT USED FOR UNKNOWN INDICATION
     Dosage: 100.0MG UNKNOWN
     Route: 065
  20. TAMSULOSIN [Suspect]
     Active Substance: TAMSULOSIN
     Indication: SECONDARY PROGRESSIVE MULTIPLE SCLEROSIS
  21. BACLOFEN. [Suspect]
     Active Substance: BACLOFEN
     Indication: PRODUCT USED FOR UNKNOWN INDICATION
     Dosage: 10.0MG UNKNOWN
     Route: 048
  22. FOLIC ACID/RIBOFLAVIN/NICOTINAMIDE/THIAMINE HYDROCHLORIDE/CHOLINE BITARTRATE/CALCIUM PHOSPHATE DIBAS [Concomitant]
     Route: 065

REACTIONS (24)
  - Fall [Unknown]
  - Gait spastic [Unknown]
  - Micturition urgency [Unknown]
  - Ataxia [Unknown]
  - Central nervous system lesion [Unknown]
  - Dysarthria [Unknown]
  - Pain [Unknown]
  - Insomnia [Unknown]
  - Anxiety [Unknown]
  - Balance disorder [Unknown]
  - Erectile dysfunction [Unknown]
  - Hypertonic bladder [Unknown]
  - Movement disorder [Unknown]
  - Pollakiuria [Unknown]
  - Memory impairment [Unknown]
  - Needle fatigue [Unknown]
  - Monoparesis [Unknown]
  - Muscle spasticity [Unknown]
  - Hypoaesthesia [Unknown]
  - Bradycardia [Unknown]
  - Multiple sclerosis relapse [Unknown]
  - Nocturia [Unknown]
  - Dizziness [Unknown]
  - Relapsing-remitting multiple sclerosis [Unknown]
